FAERS Safety Report 12662324 (Version 1)
Quarter: 2016Q3

REPORT INFORMATION
  Report Type: Spontaneous
  Country: US (occurrence: US)
  Receive Date: 20160817
  Receipt Date: 20160817
  Transmission Date: 20161109
  Serious: No
  Sender: FDA-Public Use
  Company Number: US-JUBILANT HOLLISTERSTIER LLC-1056460

PATIENT
  Age: 51 Year
  Sex: Female
  Weight: 113.18 kg

DRUGS (18)
  1. STANDARDIZED MITE DERMATOPHAGOIDES PTERONYSSINUS [Suspect]
     Active Substance: DERMATOPHAGOIDES PTERONYSSINUS
     Dates: start: 20160517, end: 20160517
  2. INSECTS (WHOLE BODY) COCKROACH MIX [Suspect]
     Active Substance: BLATELLA GERMANICA\PERIPLANETA AMERICANA
     Dates: start: 20160517, end: 20160517
  3. POLLENS - TREES, SYCAMORE, AMERICAN (EASTERN) PLATANUS OCCIDENTALLIS [Suspect]
     Active Substance: PLATANUS OCCIDENTALIS POLLEN
     Dates: start: 20160517, end: 20160517
  4. ALTERNARIA ALTERNATA. [Suspect]
     Active Substance: ALTERNARIA ALTERNATA
     Dates: start: 20160517, end: 20160517
  5. PECAN POLLEN [Suspect]
     Active Substance: CARYA ILLINOINENSIS POLLEN
     Dates: start: 20160517, end: 20160517
  6. POLLENS - TREES, ELM, AMERICAN ULMUS AMERICANA [Suspect]
     Active Substance: ULMUS AMERICANA POLLEN
     Indication: HYPERSENSITIVITY
     Dates: start: 20160517, end: 20160517
  7. STANDARDIZED MITE DERMATOPHAGOIDES FARINAE [Suspect]
     Active Substance: DERMATOPHAGOIDES FARINAE
     Dates: start: 20160517, end: 20160517
  8. LAMBS QUARTERS [Suspect]
     Active Substance: CHENOPODIUM ALBUM POLLEN
     Dates: start: 20160517, end: 20160517
  9. SOFT (SILVER) MAPLE [Suspect]
     Active Substance: ACER SACCHARINUM POLLEN
     Dates: start: 20160517, end: 20160517
  10. BAHIA GRASS POLLEN [Suspect]
     Active Substance: PASPALUM NOTATUM POLLEN
     Dates: start: 20160517, end: 20160517
  11. STERILE DILUENT FOR ALLERGENIC EXTRACT (ALBUMIN (HUMAN)\PHENOL) [Suspect]
     Active Substance: ALBUMIN HUMAN\PHENOL
     Dates: start: 20160517, end: 20160517
  12. SHORT/GIANT RAGWEED MIXTURE [Suspect]
     Active Substance: AMBROSIA ARTEMISIIFOLIA POLLEN\AMBROSIA TRIFIDA POLLEN
     Dates: start: 20160517, end: 20160517
  13. POLLENS - TREES, PRIVET LIGUSTRUM VULGARE [Suspect]
     Active Substance: LIGUSTRUM VULGARE POLLEN
     Dates: start: 20160517, end: 20160517
  14. STANDARDIZED BERMUDA GRASS [Suspect]
     Active Substance: CYNODON DACTYLON POLLEN
     Dates: start: 20160517, end: 20160517
  15. CAT HAIR, STANDARDIZED [Suspect]
     Active Substance: FELIS CATUS HAIR
     Dates: start: 20160517, end: 20160517
  16. ROUGH MARSHELDER POLLEN [Suspect]
     Active Substance: IVA ANNUA POLLEN
     Dates: start: 20160517, end: 20160517
  17. JOHNSON GRASS POLLEN [Suspect]
     Active Substance: SORGHUM HALEPENSE POLLEN
     Dates: start: 20160517, end: 20160517
  18. STANDARDIZED PERENNIAL RYEGRASS GRASS POLLEN [Suspect]
     Active Substance: LOLIUM PERENNE POLLEN
     Dates: start: 20160517, end: 20160517

REACTIONS (3)
  - Wheezing [None]
  - Urticaria [None]
  - Local reaction [None]
